FAERS Safety Report 8162741-2 (Version None)
Quarter: 2012Q1

REPORT INFORMATION
  Report Type: 
  Country: None (occurrence: None)
  Receive Date: 20120224
  Receipt Date: 20120221
  Transmission Date: 20120608
  Serious: Yes (Death)
  Sender: FDA-Public Use
  Company Number: TN-SANOFI-AVENTIS-2012SA011849

PATIENT
  Age: 71 Year
  Sex: Male

DRUGS (7)
  1. CORVASAL [Concomitant]
     Route: 048
     Dates: end: 20120113
  2. ATORVASTATIN [Concomitant]
     Route: 048
     Dates: end: 20120113
  3. PLAVIX [Suspect]
     Route: 048
     Dates: start: 20110222, end: 20120113
  4. DILTIAZEM HCL [Concomitant]
     Route: 048
     Dates: end: 20120113
  5. HYPOTEN [Concomitant]
     Route: 048
     Dates: end: 20120113
  6. ASPIRIN [Concomitant]
     Route: 048
     Dates: end: 20120113
  7. PLAVIX [Suspect]
     Indication: ACUTE CORONARY SYNDROME
     Route: 048
     Dates: start: 20110222, end: 20120113

REACTIONS (1)
  - DEATH [None]
